FAERS Safety Report 9788274 (Version 1)
Quarter: 2013Q4

REPORT INFORMATION
  Report Type: Spontaneous
  Country: US (occurrence: US)
  Receive Date: 20131230
  Receipt Date: 20131230
  Transmission Date: 20140711
  Serious: Yes (Other)
  Sender: FDA-Public Use
  Company Number: US-AMGEN-USASP2013090396

PATIENT
  Age: 90 Year
  Sex: Female

DRUGS (5)
  1. PROLIA [Suspect]
     Indication: OSTEOPOROSIS POSTMENOPAUSAL
     Dosage: UNK
     Route: 065
     Dates: start: 20130626
  2. SIMVASTATIN [Concomitant]
  3. CENTRUM SILVER                     /02363801/ [Concomitant]
  4. VITAMIN D3 [Concomitant]
  5. COQ10                              /00517201/ [Concomitant]

REACTIONS (4)
  - Urinary tract infection bacterial [Not Recovered/Not Resolved]
  - Abasia [Unknown]
  - Tendon rupture [Unknown]
  - Abdominal pain upper [Unknown]
